FAERS Safety Report 8336089-7 (Version None)
Quarter: 2012Q2

REPORT INFORMATION
  Report Type: 
  Country: None (occurrence: None)
  Receive Date: 20120504
  Receipt Date: 20120426
  Transmission Date: 20120825
  Serious: Yes (Death, Life-Threatening, Hospitalization, Disabling, Other)
  Sender: FDA-Public Use
  Company Number: PT-JNJFOC-20120412293

PATIENT
  Sex: Female

DRUGS (16)
  1. PREDNISOLONE [Suspect]
     Indication: MULTIPLE MYELOMA
     Route: 065
     Dates: start: 20111116, end: 20111119
  2. MELPHALAN HYDROCHLORIDE [Concomitant]
     Indication: MULTIPLE MYELOMA
     Route: 065
     Dates: start: 20111116, end: 20111119
  3. AMOXICILLIN AND CLAVULANATE POTASSIUM [Concomitant]
     Route: 065
     Dates: start: 20120221, end: 20120223
  4. CIPROFLOXACIN [Concomitant]
     Indication: PRODUCT USED FOR UNKNOWN INDICATION
     Route: 065
     Dates: start: 20120301, end: 20120302
  5. DURAGESIC-100 [Suspect]
     Route: 062
     Dates: start: 20111228
  6. AZITHROMYCIN [Concomitant]
     Indication: PRODUCT USED FOR UNKNOWN INDICATION
     Route: 065
     Dates: start: 20111230, end: 20120112
  7. AMOXICILLIN AND CLAVULANATE POTASSIUM [Concomitant]
     Indication: PRODUCT USED FOR UNKNOWN INDICATION
     Route: 065
     Dates: start: 20111230, end: 20120112
  8. BINOCRIT [Concomitant]
     Indication: PRODUCT USED FOR UNKNOWN INDICATION
     Route: 065
     Dates: start: 20120224, end: 20120224
  9. MEROPENEM [Concomitant]
     Route: 065
     Dates: start: 20120112
  10. AMIKACIN [Concomitant]
     Indication: PRODUCT USED FOR UNKNOWN INDICATION
     Route: 065
     Dates: start: 20120301, end: 20120302
  11. CIPROFLOXACIN [Concomitant]
     Route: 065
     Dates: start: 20120223, end: 20120228
  12. FLUCONAZOLE [Concomitant]
     Indication: PRODUCT USED FOR UNKNOWN INDICATION
     Route: 065
     Dates: start: 20120229, end: 20120302
  13. CEFTAZIDIME [Concomitant]
     Indication: PRODUCT USED FOR UNKNOWN INDICATION
     Route: 065
     Dates: start: 20120224, end: 20120228
  14. ENOXAPARIN [Concomitant]
     Indication: PRODUCT USED FOR UNKNOWN INDICATION
     Route: 065
     Dates: start: 20111230, end: 20120302
  15. DURAGESIC-100 [Suspect]
     Indication: PAIN
     Route: 062
  16. MEROPENEM [Concomitant]
     Indication: PRODUCT USED FOR UNKNOWN INDICATION
     Route: 065
     Dates: start: 20120229, end: 20120301

REACTIONS (11)
  - SEPSIS [None]
  - ACINETOBACTER INFECTION [None]
  - PNEUMONIA [None]
  - HUMERUS FRACTURE [None]
  - PATHOLOGICAL FRACTURE [None]
  - SKIN ULCER [None]
  - ARTHRALGIA [None]
  - MULTI-ORGAN FAILURE [None]
  - INFECTED SKIN ULCER [None]
  - NO THERAPEUTIC RESPONSE [None]
  - FEMUR FRACTURE [None]
